FAERS Safety Report 8840818 (Version 1)
Quarter: 2012Q4

REPORT INFORMATION
  Report Type: 
  Country: US (occurrence: US)
  Receive Date: 20121015
  Receipt Date: 20121015
  Transmission Date: 20130627
  Serious: Yes (Hospitalization)
  Sender: FDA-Public Use
  Company Number: US-ROCHE-1113672

PATIENT
  Sex: Female

DRUGS (4)
  1. NUTROPIN [Suspect]
     Indication: RENAL FAILURE CHRONIC
  2. NUTROPIN [Suspect]
     Indication: AZOTAEMIA
  3. NUTROPIN [Suspect]
     Indication: GROWTH HORMONE DEFICIENCY
  4. NUTROPIN [Suspect]
     Indication: FAILURE TO THRIVE

REACTIONS (1)
  - Hepatic infection bacterial [Unknown]
